FAERS Safety Report 16292445 (Version 1)
Quarter: 2019Q2

REPORT INFORMATION
  Report Type: Report from Study
  Country: AU (occurrence: AU)
  Receive Date: 20190509
  Receipt Date: 20190509
  Transmission Date: 20190711
  Serious: Yes (Death, Hospitalization)
  Sender: FDA-Public Use
  Company Number: AU-PFIZER INC-2019195081

PATIENT
  Age: 60 Year
  Sex: Female

DRUGS (66)
  1. FRUSEMIDE [Concomitant]
     Active Substance: FUROSEMIDE
  2. VAGIFEM [Concomitant]
     Active Substance: ESTRADIOL
  3. HARTMANNS [Concomitant]
     Active Substance: CALCIUM CHLORIDE\POTASSIUM CHLORIDE\SODIUM LACTATE
  4. PREGABALIN. [Suspect]
     Active Substance: PREGABALIN
  5. SULFASALAZINE. [Concomitant]
     Active Substance: SULFASALAZINE
  6. TAZOCIN [Concomitant]
     Active Substance: PIPERACILLIN SODIUM\TAZOBACTAM SODIUM
  7. VITAMIN C [Concomitant]
     Active Substance: ASCORBIC ACID
  8. VANCOMYCIN [Concomitant]
     Active Substance: VANCOMYCIN
  9. CALCIUM CARBONATE. [Concomitant]
     Active Substance: CALCIUM CARBONATE
  10. ALBUMIN [Concomitant]
     Active Substance: ALBUMIN HUMAN
  11. FAMCICLOVIR. [Concomitant]
     Active Substance: FAMCICLOVIR
  12. TACROLIMUS. [Concomitant]
     Active Substance: TACROLIMUS
  13. PARACETAMOL [Concomitant]
     Active Substance: ACETAMINOPHEN
  14. PREDNISOLONE. [Concomitant]
     Active Substance: PREDNISOLONE
  15. MULTIVITAMIN [VITAMINS NOS] [Concomitant]
  16. FENTANYL. [Concomitant]
     Active Substance: FENTANYL
  17. BACTRIM DS [Concomitant]
     Active Substance: SULFAMETHOXAZOLE\TRIMETHOPRIM
  18. CALCITRIOL. [Concomitant]
     Active Substance: CALCITRIOL
  19. ONDANSETRON [Concomitant]
     Active Substance: ONDANSETRON
  20. VITAMIN K [Concomitant]
     Active Substance: PHYTONADIONE
  21. MANNITOL. [Concomitant]
     Active Substance: MANNITOL
  22. ANTITHYMOCYTE IMMUNOGLOBULIN [Concomitant]
     Active Substance: THYMOCYTE IMMUNE GLOBULIN NOS
  23. HYDROCORTISONE. [Concomitant]
     Active Substance: HYDROCORTISONE
  24. AMIODARONE [Concomitant]
     Active Substance: AMIODARONE
  25. ESOMEPRAZOLE. [Concomitant]
     Active Substance: ESOMEPRAZOLE MAGNESIUM
  26. FOLIC ACID. [Concomitant]
     Active Substance: FOLIC ACID
  27. METOPROLOL. [Concomitant]
     Active Substance: METOPROLOL
  28. AMITRIPTYLINE [Concomitant]
     Active Substance: AMITRIPTYLINE
  29. MYLANTA [Concomitant]
     Active Substance: ALUMINUM HYDROXIDE\DIMETHICONE\MAGNESIUM HYDROXIDE
  30. LACTULOSE. [Concomitant]
     Active Substance: LACTULOSE
  31. NORADRENALINE [Concomitant]
     Active Substance: NOREPINEPHRINE
  32. GELOFUSINE [Concomitant]
  33. DESVENLAFAXINE. [Concomitant]
     Active Substance: DESVENLAFAXINE
  34. MYCOPHENOLATE MOFETIL. [Concomitant]
     Active Substance: MYCOPHENOLATE MOFETIL
  35. BLINDED THERAPY [Suspect]
     Active Substance: INVESTIGATIONAL PRODUCT
     Dosage: 37 ML, SINGLE
     Route: 042
     Dates: start: 20171222, end: 20171222
  36. VITAMIN B [Concomitant]
     Active Substance: VITAMIN B
  37. PROCHLORPERAZINE. [Concomitant]
     Active Substance: PROCHLORPERAZINE
  38. RANITIDINE. [Concomitant]
     Active Substance: RANITIDINE
  39. GAVISCON [Concomitant]
     Active Substance: ALUMINUM HYDROXIDE\MAGNESIUM CARBONATE
  40. OXAZEPAM. [Concomitant]
     Active Substance: OXAZEPAM
  41. RESONIUM [Concomitant]
     Active Substance: SODIUM POLYSTYRENE SULFONATE
  42. AMPHOTERICIN [Concomitant]
     Active Substance: AMPHOTERICIN B
  43. METOCLOPRAMIDE. [Concomitant]
     Active Substance: METOCLOPRAMIDE
  44. GASTROGEL [Concomitant]
     Active Substance: ALUMINUM HYDROXIDE\MAGNESIUM HYDROXIDE\MAGNESIUM TRISILICATE
  45. BASILIXIMAB [Concomitant]
     Active Substance: BASILIXIMAB
  46. PANADEINE FORTE [Concomitant]
     Active Substance: ACETAMINOPHEN\CODEINE PHOSPHATE
  47. HEPARIN [Concomitant]
     Active Substance: HEPARIN SODIUM
  48. COLOXYL WITH SENNA [Concomitant]
     Active Substance: DOCUSATE\SENNOSIDES
  49. METHYLPREDNISOLONE. [Concomitant]
     Active Substance: METHYLPREDNISOLONE
  50. MAGNESIUM SULPHATE ATLANTIC [Concomitant]
  51. CLONIDINE. [Concomitant]
     Active Substance: CLONIDINE
  52. ALLOPURINOL. [Concomitant]
     Active Substance: ALLOPURINOL
  53. HYDROXYCHLOROQUINE [Concomitant]
     Active Substance: HYDROXYCHLOROQUINE
  54. MAGNESIA S.PELLEGRINO [Concomitant]
  55. ANIDULAFUNGIN [Concomitant]
     Active Substance: ANIDULAFUNGIN
  56. METARAMINOL [Concomitant]
     Active Substance: METARAMINOL
  57. NORMAL SALINE [Concomitant]
     Active Substance: SODIUM CHLORIDE
  58. DEXAMETHASONE. [Concomitant]
     Active Substance: DEXAMETHASONE
  59. EPOETIN LAMBDA [Concomitant]
  60. LEFLUNOMIDE. [Concomitant]
     Active Substance: LEFLUNOMIDE
  61. OXYCODONE [Concomitant]
     Active Substance: OXYCODONE
  62. PANTOPRAZOLE [Concomitant]
     Active Substance: PANTOPRAZOLE
  63. MEROPENEM. [Concomitant]
     Active Substance: MEROPENEM
  64. TEMAZEPAM. [Concomitant]
     Active Substance: TEMAZEPAM
  65. CETIRIZINE [Concomitant]
     Active Substance: CETIRIZINE HYDROCHLORIDE
  66. VALGANCICLOVIR. [Concomitant]
     Active Substance: VALGANCICLOVIR

REACTIONS (10)
  - Septic shock [Fatal]
  - Atrial fibrillation [Recovered/Resolved]
  - Kidney transplant rejection [Recovered/Resolved]
  - Renal failure [Not Recovered/Not Resolved]
  - Sepsis [Recovered/Resolved]
  - Sepsis [Recovered/Resolved]
  - Hypotension [Recovered/Resolved]
  - Multiple organ dysfunction syndrome [Fatal]
  - Delayed graft function [Recovered/Resolved with Sequelae]
  - Somnolence [Recovered/Resolved]

NARRATIVE: CASE EVENT DATE: 20171223
